FAERS Safety Report 15243729 (Version 2)
Quarter: 2018Q4

REPORT INFORMATION
  Report Type: Spontaneous
  Country: US (occurrence: US)
  Receive Date: 20180806
  Receipt Date: 20180906
  Transmission Date: 20190204
  Serious: Yes (Life-Threatening, Hospitalization, Other)
  Sender: FDA-Public Use
  Company Number: US-HIKMA PHARMACEUTICALS USA INC.-US-H14001-18-06351

PATIENT
  Age: 60 Year
  Sex: Male

DRUGS (3)
  1. TESTOSTERONE CIPIONATE [Suspect]
     Active Substance: TESTOSTERONE
     Indication: HYPOGONADISM MALE
     Dosage: ()
     Route: 030
  2. AZITHROMYCIN ANHYDROUS. [Concomitant]
     Active Substance: AZITHROMYCIN ANHYDROUS
     Indication: PNEUMONIA
     Route: 065
  3. CEFTRIAXONE. [Concomitant]
     Active Substance: CEFTRIAXONE
     Indication: PNEUMONIA
     Route: 065

REACTIONS (9)
  - Pulmonary oedema [Recovered/Resolved]
  - Cardiotoxicity [Recovered/Resolved]
  - Blood creatinine increased [Unknown]
  - Blood testosterone increased [Recovered/Resolved]
  - Drug abuse [Unknown]
  - Cardiomyopathy [Recovered/Resolved]
  - Respiratory failure [Unknown]
  - Polycythaemia [Unknown]
  - High density lipoprotein decreased [Unknown]
